FAERS Safety Report 9127813 (Version 1)
Quarter: 2013Q1

REPORT INFORMATION
  Report Type: Spontaneous
  Country: IT (occurrence: IT)
  Receive Date: 20130122
  Receipt Date: 20130122
  Transmission Date: 20140127
  Serious: Yes (Other)
  Sender: FDA-Public Use
  Company Number: IT-JNJFOC-20130110804

PATIENT
  Age: 13 Year
  Sex: Male

DRUGS (3)
  1. RISPERIDONE [Suspect]
     Indication: ATTENTION DEFICIT/HYPERACTIVITY DISORDER
     Route: 065
  2. ATOMOXETINE [Interacting]
     Indication: ATTENTION DEFICIT/HYPERACTIVITY DISORDER
     Route: 065
  3. VALPROATE NOS [Concomitant]
     Indication: EPILEPSY
     Route: 065

REACTIONS (2)
  - Dystonia [Recovered/Resolved]
  - Drug interaction [Recovered/Resolved]
